FAERS Safety Report 8926517 (Version 2)
Quarter: 2012Q4

REPORT INFORMATION
  Report Type: 
  Country: CA (occurrence: CA)
  Receive Date: 20121127
  Receipt Date: 20121218
  Transmission Date: 20130627
  Serious: Yes (Hospitalization, Other)
  Sender: FDA-Public Use
  Company Number: CA-ELI_LILLY_AND_COMPANY-CA201211007250

PATIENT
  Sex: Female

DRUGS (2)
  1. HUMULIN REGULAR [Suspect]
     Indication: TYPE 1 DIABETES MELLITUS
     Dosage: 20 u, bid
  2. HUMULIN NPH [Suspect]
     Indication: TYPE 1 DIABETES MELLITUS
     Dosage: 20 u, bid

REACTIONS (4)
  - Lower limb fracture [Recovered/Resolved]
  - Lower limb fracture [Recovering/Resolving]
  - Fall [Recovered/Resolved]
  - Hypoglycaemia [Recovering/Resolving]
